FAERS Safety Report 11148513 (Version 2)
Quarter: 2017Q1

REPORT INFORMATION
  Report Type: Spontaneous
  Country: US (occurrence: US)
  Receive Date: 20150529
  Receipt Date: 20170227
  Transmission Date: 20170428
  Serious: Yes (Other)
  Sender: FDA-Public Use
  Company Number: US-ELI_LILLY_AND_COMPANY-US201505009551

PATIENT
  Sex: Female

DRUGS (4)
  1. CYMBALTA [Suspect]
     Active Substance: DULOXETINE HYDROCHLORIDE
     Indication: BACK PAIN
     Dosage: 60 MG, QD
     Route: 065
     Dates: start: 20120127, end: 201207
  2. CYMBALTA [Suspect]
     Active Substance: DULOXETINE HYDROCHLORIDE
     Indication: DEPRESSION
  3. PRAZOSIN [Suspect]
     Active Substance: PRAZOSIN
     Indication: NIGHTMARE
     Dosage: 5 MG, QD
     Route: 065
     Dates: start: 201207
  4. PRAZOSIN [Suspect]
     Active Substance: PRAZOSIN
     Indication: SUICIDAL IDEATION

REACTIONS (15)
  - Vertigo [Unknown]
  - Dysphoria [Unknown]
  - Nausea [Unknown]
  - Intentional product misuse [Unknown]
  - Nightmare [Recovered/Resolved]
  - Dizziness [Unknown]
  - Fatigue [Unknown]
  - Crying [Unknown]
  - Affect lability [Unknown]
  - Suicidal ideation [Recovered/Resolved]
  - Agitation [Unknown]
  - Headache [Unknown]
  - Mood swings [Unknown]
  - Irritability [Unknown]
  - Drug withdrawal syndrome [Unknown]
